FAERS Safety Report 6602060-6 (Version None)
Quarter: 2010Q1

REPORT INFORMATION
  Report Type: 
  Country: None (occurrence: None)
  Receive Date: 20100225
  Receipt Date: 20100210
  Transmission Date: 20100710
  Serious: Yes (Other)
  Sender: FDA-Public Use
  Company Number: PHEH2010US02429

PATIENT
  Sex: Female

DRUGS (4)
  1. GLEEVEC [Suspect]
     Indication: CHRONIC MYELOID LEUKAEMIA
     Dosage: 400 MG, QD
     Route: 048
  2. REGLAN [Suspect]
     Indication: IMPAIRED GASTRIC EMPTYING
  3. PROMETHAZINE [Concomitant]
     Indication: NAUSEA
  4. PROMETHAZINE [Concomitant]
     Indication: VOMITING

REACTIONS (4)
  - IMPAIRED GASTRIC EMPTYING [None]
  - NAUSEA [None]
  - TARDIVE DYSKINESIA [None]
  - VOMITING [None]
